FAERS Safety Report 6293998-0 (Version None)
Quarter: 2009Q3

REPORT INFORMATION
  Report Type: 
  Country: None (occurrence: None)
  Receive Date: 20090803
  Receipt Date: 20080709
  Transmission Date: 20100115
  Serious: No
  Sender: FDA-Public Use
  Company Number: A0737395A

PATIENT
  Age: 68 Year
  Sex: Male

DRUGS (3)
  1. NICORETTE [Suspect]
  2. NICORETTE [Suspect]
  3. COMMIT [Suspect]

REACTIONS (5)
  - BURNING SENSATION [None]
  - GLOSSITIS [None]
  - GLOSSODYNIA [None]
  - INTENTIONAL DRUG MISUSE [None]
  - THERMAL BURN [None]
